APPROVED DRUG PRODUCT: OXAPROZIN
Active Ingredient: OXAPROZIN
Strength: 600MG
Dosage Form/Route: TABLET;ORAL
Application: A075845 | Product #001 | TE Code: AB
Applicant: PANGEA PHARMACEUTICALS LLC
Approved: Jan 31, 2001 | RLD: No | RS: No | Type: RX